FAERS Safety Report 6177492-3 (Version None)
Quarter: 2009Q2

REPORT INFORMATION
  Report Type: 
  Country: None (occurrence: None)
  Receive Date: 20090504
  Receipt Date: 20090430
  Transmission Date: 20091009
  Serious: Yes (Death, Hospitalization)
  Sender: FDA-Public Use
  Company Number: PHEH2009US04290

PATIENT
  Sex: Male
  Weight: 59 kg

DRUGS (7)
  1. ZOMETA [Suspect]
     Indication: LUNG NEOPLASM MALIGNANT
     Dosage: 4 MG IV Q4 WEEKS
     Dates: start: 20081201, end: 20090301
  2. ZOMETA [Suspect]
     Indication: METASTASES TO BONE
  3. ALIMTA [Concomitant]
     Indication: LUNG NEOPLASM MALIGNANT
  4. PROCRIT                            /00909301/ [Concomitant]
     Indication: ANAEMIA
  5. ZOFRAN [Concomitant]
     Indication: PREMEDICATION
  6. BENADRYL ^PARKE DAVIS^                  /ISR/ [Concomitant]
     Indication: PREMEDICATION
  7. B12 ^RECIP^ [Concomitant]
     Indication: ANAEMIA

REACTIONS (3)
  - BLOOD CHLORIDE DECREASED [None]
  - HYPONATRAEMIA [None]
  - LUNG NEOPLASM MALIGNANT [None]
